FAERS Safety Report 6545971-2 (Version None)
Quarter: 2010Q1

REPORT INFORMATION
  Report Type: 
  Country: None (occurrence: None)
  Receive Date: 20100121
  Receipt Date: 20100121
  Transmission Date: 20100710
  Serious: Yes (Other)
  Sender: FDA-Public Use
  Company Number: None

PATIENT
  Age: 48 Year
  Sex: Female
  Weight: 65.7716 kg

DRUGS (1)
  1. TYLENOL [Suspect]
     Indication: PAIN
     Dosage: 1500-2000 MG 3X DAY PO
     Route: 048
     Dates: start: 20091212, end: 20100119

REACTIONS (11)
  - ACTIVITIES OF DAILY LIVING IMPAIRED [None]
  - ASTHENIA [None]
  - DECREASED APPETITE [None]
  - FATIGUE [None]
  - MYALGIA [None]
  - NAUSEA [None]
  - OEDEMA [None]
  - PRODUCT CONTAMINATION CHEMICAL [None]
  - PRODUCT ODOUR ABNORMAL [None]
  - PRODUCT QUALITY ISSUE [None]
  - VOMITING [None]
